FAERS Safety Report 4759925-X (Version None)
Quarter: 2005Q3

REPORT INFORMATION
  Report Type: 
  Country: None (occurrence: None)
  Receive Date: 20050831
  Receipt Date: 20050816
  Transmission Date: 20060218
  Serious: Yes (Death, Other)
  Sender: FDA-Public Use
  Company Number: 2005BI006757

PATIENT
  Age: 59 Year
  Sex: Female

DRUGS (12)
  1. AVONEX [Suspect]
     Indication: MULTIPLE SCLEROSIS
     Dosage: 30 UG; IM
     Route: 030
     Dates: start: 19970601
  2. XANAX [Concomitant]
  3. ANTIVERT [Concomitant]
  4. DITROPAN XL [Concomitant]
  5. CAPOTEN [Concomitant]
  6. ZANAFLEX [Concomitant]
  7. ACIPHEX [Concomitant]
  8. MULTI-VITAMIN [Concomitant]
  9. VITAMIN E [Concomitant]
  10. VITAMIN B COMPLEX CAP [Concomitant]
  11. GLYBURIDE [Concomitant]
  12. LEXAPRO [Concomitant]

REACTIONS (4)
  - ACUTE MYOCARDIAL INFARCTION [None]
  - CARDIO-RESPIRATORY ARREST [None]
  - CORONARY ARTERY DISEASE [None]
  - OVARIAN CANCER [None]
